FAERS Safety Report 9957466 (Version 1)
Quarter: 2014Q1

REPORT INFORMATION
  Report Type: Report from Study
  Country: US (occurrence: US)
  Receive Date: 20140304
  Receipt Date: 20140304
  Transmission Date: 20141002
  Serious: No
  Sender: FDA-Public Use
  Company Number: US-ABBVIE-13P-163-1098544-00

PATIENT
  Age: 56 Year
  Sex: Male

DRUGS (7)
  1. HUMIRA [Suspect]
     Indication: PSORIASIS
     Dates: start: 20130523
  2. METFORMIN [Concomitant]
     Indication: TYPE 2 DIABETES MELLITUS
  3. METOPROLOL [Concomitant]
     Indication: CARDIOVASCULAR EVENT PROPHYLAXIS
  4. LOVASTATIN [Concomitant]
     Indication: BLOOD CHOLESTEROL
  5. CLOPIDOGREL [Concomitant]
  6. ASA [Concomitant]
     Indication: CARDIOVASCULAR EVENT PROPHYLAXIS
  7. FLUOXETINE [Concomitant]
     Indication: DEPRESSION

REACTIONS (1)
  - Fatigue [Recovered/Resolved]
